FAERS Safety Report 5639271-2 (Version None)
Quarter: 2008Q1

REPORT INFORMATION
  Report Type: 
  Country: None (occurrence: None)
  Receive Date: 20080226
  Receipt Date: 20070307
  Transmission Date: 20080703
  Serious: No
  Sender: FDA-Public Use
  Company Number: US-BOEHRINGER INGELHEIM GMBH, GERMANY-2007-BP-03183BP

PATIENT
  Sex: Male

DRUGS (7)
  1. FLOMAX [Suspect]
     Indication: BENIGN PROSTATIC HYPERPLASIA
     Route: 048
  2. PRINIVIL [Concomitant]
  3. TENORMIN [Concomitant]
  4. DILTIAZEM [Concomitant]
  5. OMEPRAZOLE [Concomitant]
  6. RESTORIL [Concomitant]
  7. EYE DROPS [Concomitant]

REACTIONS (1)
  - VISUAL ACUITY REDUCED [None]
